FAERS Safety Report 13688520 (Version 1)
Quarter: 2017Q2

REPORT INFORMATION
  Report Type: Spontaneous
  Country: US (occurrence: US)
  Receive Date: 20170623
  Receipt Date: 20170623
  Transmission Date: 20170830
  Serious: Yes (Life-Threatening, Hospitalization, Other)
  Sender: FDA-Public Use
  Company Number: None

PATIENT
  Age: 26 Year
  Sex: Male
  Weight: 70 kg

DRUGS (1)
  1. METFORM SR 1000 MG [Suspect]
     Active Substance: METFORMIN HYDROCHLORIDE

REACTIONS (11)
  - Lactic acidosis [None]
  - Myalgia [None]
  - Dizziness [None]
  - Somnolence [None]
  - Dyspnoea [None]
  - Heart rate irregular [None]
  - Gastritis [None]
  - Respiratory rate increased [None]
  - Fatigue [None]
  - Heart rate decreased [None]
  - Diarrhoea [None]

NARRATIVE: CASE EVENT DATE: 20170606
